FAERS Safety Report 17437079 (Version 1)
Quarter: 2020Q1

REPORT INFORMATION
  Report Type: Report from Study
  Country: US (occurrence: US)
  Receive Date: 20200219
  Receipt Date: 20200219
  Transmission Date: 20200409
  Serious: Yes (Other)
  Sender: FDA-Public Use
  Company Number: US-UCBSA-2020006263

PATIENT
  Sex: Female
  Weight: 54 kg

DRUGS (4)
  1. MELOXICAM. [Concomitant]
     Active Substance: MELOXICAM
     Indication: PRODUCT USED FOR UNKNOWN INDICATION
     Dosage: 7.5 MILLIGRAM, ONCE DAILY (QD)
     Route: 048
  2. LEVETIRACETAM. [Suspect]
     Active Substance: LEVETIRACETAM
     Indication: EPILEPSY
     Dosage: UNK
  3. VIMPAT [Suspect]
     Active Substance: LACOSAMIDE
     Indication: PRODUCT USED FOR UNKNOWN INDICATION
     Dosage: 100MG
  4. TEGRETOL [Concomitant]
     Active Substance: CARBAMAZEPINE
     Indication: PRODUCT USED FOR UNKNOWN INDICATION
     Dosage: 5 MILLILITER, 3X/DAY (TID)
     Route: 048

REACTIONS (9)
  - Suicidal ideation [Unknown]
  - Road traffic accident [Unknown]
  - Head injury [Unknown]
  - Dementia Alzheimer^s type [Unknown]
  - Seizure [Unknown]
  - Fall [Unknown]
  - Hypersensitivity [Unknown]
  - Anal incontinence [Unknown]
  - Urinary incontinence [Unknown]
